FAERS Safety Report 6239739-4 (Version None)
Quarter: 2009Q2

REPORT INFORMATION
  Report Type: 
  Country: None (occurrence: None)
  Receive Date: 20090619
  Receipt Date: 20090608
  Transmission Date: 20091009
  Serious: Yes (Death)
  Sender: FDA-Public Use
  Company Number: ADR3982009

PATIENT
  Age: 61 Year
  Sex: Male

DRUGS (5)
  1. METFORMIN HYDROCHLORIDE [Suspect]
     Indication: TYPE 2 DIABETES MELLITUS
     Dosage: 2550 MG (850 MG, 3 IN 1 DAY)
     Route: 048
     Dates: start: 20090317
  2. DOCITON (PROPANOLOL HYDROCHLORIDE) [Concomitant]
  3. DYTIDE H (HCTZ/TRIAMTERENE) [Concomitant]
  4. HEPA-MERZ 3000 (ORNITHINE ASPARTATE) [Concomitant]
  5. LACTULOSE [Concomitant]

REACTIONS (4)
  - ACUTE HEPATIC FAILURE [None]
  - HYPERKALAEMIA [None]
  - LACTIC ACIDOSIS [None]
  - RENAL FAILURE ACUTE [None]
